FAERS Safety Report 24464358 (Version 1)
Quarter: 2024Q4

REPORT INFORMATION
  Report Type: Report from Study
  Country: US (occurrence: US)
  Receive Date: 20241018
  Receipt Date: 20241018
  Transmission Date: 20250114
  Serious: No
  Sender: ROCHE
  Company Number: US-ROCHE-3501654

PATIENT
  Age: 70 Year
  Sex: Male
  Weight: 97.07 kg

DRUGS (1)
  1. XOLAIR [Suspect]
     Active Substance: OMALIZUMAB
     Indication: Asthma
     Dosage: 150 MG
     Route: 058

REACTIONS (7)
  - Hypoaesthesia [Unknown]
  - Paraesthesia [Unknown]
  - Hypothyroidism [Unknown]
  - Iron deficiency [Unknown]
  - Type V hyperlipidaemia [Unknown]
  - Osteoporosis [Unknown]
  - Joint stiffness [Unknown]
